FAERS Safety Report 16031256 (Version 2)
Quarter: 2019Q2

REPORT INFORMATION
  Report Type: Spontaneous
  Country: US (occurrence: US)
  Receive Date: 20190304
  Receipt Date: 20190503
  Transmission Date: 20190711
  Serious: Yes (Death)
  Sender: FDA-Public Use
  Company Number: US-ASTRAZENECA-2019SE35744

PATIENT
  Age: 54 Year
  Sex: Male
  Weight: 74.6 kg

DRUGS (4)
  1. ACALABRUTINIB. [Suspect]
     Active Substance: ACALABRUTINIB
     Indication: MANTLE CELL LYMPHOMA
     Route: 048
     Dates: start: 201901
  2. TESSALON [Concomitant]
     Active Substance: BENZONATATE
  3. ACYCLOVIR. [Concomitant]
     Active Substance: ACYCLOVIR
  4. SULFAMETHOXAZOLE-TRIMETHOPRIM [Concomitant]
     Active Substance: SULFAMETHOXAZOLE\TRIMETHOPRIM

REACTIONS (1)
  - Influenza [Fatal]
